FAERS Safety Report 9675875 (Version 2)
Quarter: 2013Q4

REPORT INFORMATION
  Report Type: Spontaneous
  Country: JP (occurrence: JP)
  Receive Date: 20131107
  Receipt Date: 20131118
  Transmission Date: 20140711
  Serious: Yes (Hospitalization)
  Sender: FDA-Public Use
  Company Number: JP-GLAXOSMITHKLINE-B0939893A

PATIENT
  Age: 80 Year
  Sex: 0

DRUGS (6)
  1. PAXIL [Suspect]
     Indication: DEPRESSION
     Dosage: 12.5MG PER DAY
     Route: 048
  2. PAXIL [Suspect]
     Indication: DEPRESSION
     Route: 048
  3. PAXIL [Suspect]
     Indication: DEPRESSION
     Route: 048
  4. GASMOTIN [Concomitant]
     Route: 048
  5. PARIET [Concomitant]
     Route: 048
  6. CHINESE MEDICINE [Concomitant]
     Route: 048

REACTIONS (3)
  - Abdominal discomfort [Unknown]
  - Urinary tract infection [Recovering/Resolving]
  - Hypophagia [Unknown]
